FAERS Safety Report 19283561 (Version 2)
Quarter: 2021Q2

REPORT INFORMATION
  Report Type: Spontaneous
  Country: US (occurrence: US)
  Receive Date: 20210520
  Receipt Date: 20210616
  Transmission Date: 20210717
  Serious: No
  Sender: FDA-Public Use
  Company Number: US-ASTRAZENECA-2021A438643

PATIENT
  Sex: Female
  Weight: 104.3 kg

DRUGS (2)
  1. BYDUREON [Suspect]
     Active Substance: EXENATIDE
     Route: 058
  2. BYDUREON BCISE [Suspect]
     Active Substance: EXENATIDE
     Route: 058

REACTIONS (6)
  - Device issue [Unknown]
  - Device leakage [Unknown]
  - Visual impairment [Unknown]
  - Wrong technique in device usage process [Unknown]
  - Intentional device misuse [Unknown]
  - Device use issue [Unknown]
